FAERS Safety Report 9394048 (Version 1)
Quarter: 2013Q3

REPORT INFORMATION
  Report Type: Spontaneous
  Country: US (occurrence: US)
  Receive Date: 20130710
  Receipt Date: 20130710
  Transmission Date: 20140515
  Serious: No
  Sender: FDA-Public Use
  Company Number: US-TEVA-418157USA

PATIENT
  Age: 26 Year
  Sex: Female
  Weight: 56.75 kg

DRUGS (1)
  1. PLAN B ONE-STEP [Suspect]
     Indication: POST COITAL CONTRACEPTION
     Dosage: 1.5 MILLIGRAM DAILY;
     Route: 048
     Dates: start: 20130607, end: 20130607

REACTIONS (5)
  - Migraine [Recovered/Resolved]
  - Menstruation irregular [Recovered/Resolved]
  - Nausea [Recovered/Resolved]
  - Anxiety [Recovered/Resolved]
  - Pelvic pain [Recovered/Resolved]
